FAERS Safety Report 5897880-X (Version None)
Quarter: 2008Q3

REPORT INFORMATION
  Report Type: 
  Country: None (occurrence: None)
  Receive Date: 20080924
  Receipt Date: 20080924
  Transmission Date: 20090109
  Serious: Yes (Hospitalization)
  Sender: FDA-Public Use
  Company Number: None

PATIENT
  Sex: Male

DRUGS (1)
  1. TEMSIROLIMUS [Suspect]

REACTIONS (6)
  - DIARRHOEA [None]
  - NAUSEA [None]
  - PYREXIA [None]
  - RENAL FAILURE ACUTE [None]
  - RENAL INJURY [None]
  - VOMITING [None]
